FAERS Safety Report 5017963-6 (Version None)
Quarter: 2006Q2

REPORT INFORMATION
  Report Type: 
  Country: None (occurrence: None)
  Receive Date: 20060605
  Receipt Date: 20060518
  Transmission Date: 20061013
  Serious: Yes (Other)
  Sender: FDA-Public Use
  Company Number: IT-GLAXOSMITHKLINE-B0424895A

PATIENT
  Age: 41 Year
  Sex: Male

DRUGS (6)
  1. COMBIVIR [Suspect]
     Indication: HIV INFECTION
     Dosage: 1TAB TWICE PER DAY
     Route: 048
     Dates: start: 20050620
  2. GW873140 [Suspect]
     Indication: HIV INFECTION
     Dosage: 600MG TWICE PER DAY
     Route: 048
     Dates: start: 20050620, end: 20050915
  3. SUSTIVA [Suspect]
     Indication: HIV INFECTION
     Route: 048
     Dates: start: 20050916
  4. ZITHROMAX [Concomitant]
     Dates: start: 20051202, end: 20051208
  5. ROCEPHIN [Concomitant]
     Dates: start: 20051209
  6. TAVANIC [Concomitant]
     Dates: start: 20051209

REACTIONS (2)
  - HERPES VIRUS INFECTION [None]
  - PYREXIA [None]
